FAERS Safety Report 24597137 (Version 6)
Quarter: 2025Q2

REPORT INFORMATION
  Report Type: Spontaneous
  Country: US (occurrence: US)
  Receive Date: 20241110
  Receipt Date: 20250423
  Transmission Date: 20250716
  Serious: Yes (Other)
  Sender: SANOFI AVENTIS
  Company Number: US-SA-2024SA300805

PATIENT
  Age: 69 Year
  Sex: Female

DRUGS (2)
  1. DUPIXENT [Suspect]
     Active Substance: DUPILUMAB
     Indication: Dermatitis atopic
     Route: 058
     Dates: start: 20240903, end: 20240903
  2. DUPIXENT [Suspect]
     Active Substance: DUPILUMAB
     Dosage: 300 MG, QOW
     Route: 058
     Dates: start: 202409

REACTIONS (12)
  - Anaphylactic reaction [Recovered/Resolved]
  - Injection site warmth [Unknown]
  - Pruritus [Unknown]
  - Injection site rash [Recovered/Resolved]
  - Injection site pruritus [Unknown]
  - Injection site erythema [Unknown]
  - Injection site pain [Unknown]
  - Rash [Recovering/Resolving]
  - Dermatitis atopic [Unknown]
  - Intentional dose omission [Unknown]
  - Injection site swelling [Unknown]
  - Product preparation error [Unknown]

NARRATIVE: CASE EVENT DATE: 20240101
